FAERS Safety Report 6228406-9 (Version None)
Quarter: 2009Q2

REPORT INFORMATION
  Report Type: 
  Country: None (occurrence: None)
  Receive Date: 20090610
  Receipt Date: 20090610
  Transmission Date: 20091009
  Serious: Yes (Hospitalization)
  Sender: FDA-Public Use
  Company Number: None

PATIENT
  Sex: Male
  Weight: 62 kg

DRUGS (3)
  1. CYTARABINE [Suspect]
     Dosage: 850 MG
     Dates: start: 20090422, end: 20090427
  2. DAUNORUBICIN HCL [Suspect]
     Dosage: 230 MG
     Dates: end: 20090423
  3. ETOPOSIDE [Suspect]
     Dosage: 340 MG
     Dates: end: 20090423

REACTIONS (35)
  - ABDOMINAL PAIN UPPER [None]
  - ANOREXIA [None]
  - BRADYCARDIA [None]
  - CHEST PAIN [None]
  - CHILLS [None]
  - COUGH [None]
  - DIARRHOEA [None]
  - DIZZINESS [None]
  - DYSPHAGIA [None]
  - DYSPNOEA [None]
  - EJECTION FRACTION DECREASED [None]
  - EPISTAXIS [None]
  - FALL [None]
  - FATIGUE [None]
  - FEBRILE NEUTROPENIA [None]
  - HAEMOPTYSIS [None]
  - HALLUCINATION [None]
  - HYPERTENSION [None]
  - HYPOTENSION [None]
  - HYPOXIA [None]
  - MUCOSAL INFLAMMATION [None]
  - NAUSEA [None]
  - NON-CARDIAC CHEST PAIN [None]
  - ORAL PAIN [None]
  - OROPHARYNGEAL PAIN [None]
  - PNEUMONIA [None]
  - PYREXIA [None]
  - SYNCOPE [None]
  - TACHYCARDIA [None]
  - TACHYPNOEA [None]
  - VASCULAR PSEUDOANEURYSM [None]
  - VENTRICULAR TACHYCARDIA [None]
  - VOMITING [None]
  - WEIGHT DECREASED [None]
  - WHEEZING [None]
